FAERS Safety Report 4610495-6 (Version None)
Quarter: 2005Q1

REPORT INFORMATION
  Report Type: 
  Country: None (occurrence: None)
  Receive Date: 20050314
  Receipt Date: 20050303
  Transmission Date: 20050727
  Serious: Yes (Hospitalization)
  Sender: FDA-Public Use
  Company Number: 141517USA

PATIENT
  Age: 32 Year
  Sex: Female

DRUGS (2)
  1. PURINETHOL [Suspect]
     Indication: MEDICATION ERROR
     Dates: start: 20021201, end: 20030101
  2. PROOPRANOLOL HYDROCHLORIDE [Concomitant]

REACTIONS (7)
  - APLASTIC ANAEMIA [None]
  - BONE MARROW DEPRESSION [None]
  - DRUG EXPOSURE DURING PREGNANCY [None]
  - FEBRILE NEUTROPENIA [None]
  - MEDICATION ERROR [None]
  - PANCYTOPENIA [None]
  - THERAPY NON-RESPONDER [None]
